FAERS Safety Report 14276434 (Version 1)
Quarter: 2017Q4

REPORT INFORMATION
  Report Type: Spontaneous
  Country: GB (occurrence: GB)
  Receive Date: 20171211
  Receipt Date: 20171211
  Transmission Date: 20180321
  Serious: Yes (Other)
  Sender: FDA-Public Use
  Company Number: GB-OTSUKA-DJ201301457

PATIENT
  Age: 58 Year
  Sex: Female

DRUGS (1)
  1. ABILIFY [Suspect]
     Active Substance: ARIPIPRAZOLE
     Indication: PSYCHOTIC DISORDER
     Dosage: DOSE WAS INCREASED TO 10MG/D
     Route: 048
     Dates: start: 2006

REACTIONS (4)
  - Memory impairment [Not Recovered/Not Resolved]
  - Off label use [Unknown]
  - Psychotic disorder [Not Recovered/Not Resolved]
  - Drug dose omission [Unknown]
